FAERS Safety Report 19285587 (Version 1)
Quarter: 2021Q2

REPORT INFORMATION
  Report Type: Spontaneous
  Country: JP (occurrence: JP)
  Receive Date: 20210521
  Receipt Date: 20210521
  Transmission Date: 20210717
  Serious: Yes (Other)
  Sender: FDA-Public Use
  Company Number: JP-PFIZER INC-2021510547

PATIENT
  Sex: Female

DRUGS (5)
  1. LOXONIN [Concomitant]
     Active Substance: LOXOPROFEN SODIUM
     Dosage: UNK UNK, UNKNOWN FREQ.
     Route: 065
  2. CELECOXIB. [Suspect]
     Active Substance: CELECOXIB
     Indication: BACK PAIN
     Dosage: 100 MG, 1X/DAY
     Route: 048
     Dates: end: 20210426
  3. CELECOXIB. [Suspect]
     Active Substance: CELECOXIB
     Dosage: UNK UNK, UNKNOWN FREQ.
     Route: 048
     Dates: start: 20210505
  4. CALONAL [Suspect]
     Active Substance: ACETAMINOPHEN
     Indication: BACK PAIN
     Dosage: UNK UNK, UNKNOWN FREQ
     Route: 065
  5. CEPHADOL [Suspect]
     Active Substance: DIPHENIDOL HYDROCHLORIDE
     Dosage: UNK UNK, UNKNOWN FREQ.
     Route: 048

REACTIONS (13)
  - Breast inflammation [Unknown]
  - Liver function test increased [Unknown]
  - Notalgia paraesthetica [Unknown]
  - Fatigue [Unknown]
  - Glucose urine present [Unknown]
  - Underdose [Unknown]
  - Erythema [Unknown]
  - Breast abscess [Unknown]
  - Erythema [Not Recovered/Not Resolved]
  - Nasopharyngitis [Unknown]
  - Product use issue [Unknown]
  - Photosensitivity reaction [Unknown]
  - Herpes zoster [Recovering/Resolving]

NARRATIVE: CASE EVENT DATE: 202103
